FAERS Safety Report 5689926-9 (Version None)
Quarter: 2008Q1

REPORT INFORMATION
  Report Type: 
  Country: None (occurrence: None)
  Receive Date: 20080331
  Receipt Date: 20080331
  Transmission Date: 20080703
  Serious: Yes (Hospitalization)
  Sender: FDA-Public Use
  Company Number: None

PATIENT
  Age: 52 Year
  Sex: Male
  Weight: 190 kg

DRUGS (1)
  1. METOLAZONE [Suspect]
     Indication: PAIN
     Dosage: 1TAB EVERY DAY PO
     Route: 048
     Dates: start: 20080214, end: 20080317

REACTIONS (1)
  - PANCREATITIS [None]
